FAERS Safety Report 15570798 (Version 2)
Quarter: 2018Q4

REPORT INFORMATION
  Report Type: Report from Study
  Country: US (occurrence: US)
  Receive Date: 20181031
  Receipt Date: 20181105
  Transmission Date: 20190205
  Serious: Yes (Hospitalization, Other)
  Sender: FDA-Public Use
  Company Number: US-BRISTOL-MYERS SQUIBB COMPANY-BMS-2018-099962

PATIENT
  Age: 70 Year
  Sex: Female
  Weight: 81.6 kg

DRUGS (3)
  1. IPILIMUMAB [Suspect]
     Active Substance: IPILIMUMAB
     Indication: SPINDLE CELL SARCOMA
     Dosage: 1 MG/KG, Q4WK
     Route: 042
     Dates: start: 20180823
  2. NIVOLUMAB [Suspect]
     Active Substance: NIVOLUMAB
     Indication: PRODUCT USED FOR UNKNOWN INDICATION
     Dosage: 3 MG/KG, Q4WK
     Route: 065
  3. NIVOLUMAB [Suspect]
     Active Substance: NIVOLUMAB
     Indication: SPINDLE CELL SARCOMA
     Dosage: 3 MG/KG, Q3WK
     Route: 042
     Dates: start: 20180823

REACTIONS (5)
  - Urinary tract infection [Unknown]
  - Malignant neoplasm progression [Unknown]
  - Pneumonia [Unknown]
  - Hydronephrosis [Unknown]
  - Infection [Unknown]
